FAERS Safety Report 13409902 (Version 1)
Quarter: 2017Q2

REPORT INFORMATION
  Report Type: Spontaneous
  Country: US (occurrence: US)
  Receive Date: 20170406
  Receipt Date: 20170406
  Transmission Date: 20170830
  Serious: No
  Sender: FDA-Public Use
  Company Number: US-PFIZER INC-2017147213

PATIENT
  Sex: Male

DRUGS (2)
  1. PLETAL [Suspect]
     Active Substance: CILOSTAZOL
     Dosage: UNK
  2. PANTOPRAZOLE [Suspect]
     Active Substance: PANTOPRAZOLE
     Dosage: UNK

REACTIONS (2)
  - Dyspepsia [Unknown]
  - Blood pressure decreased [Unknown]
